FAERS Safety Report 5465346-7 (Version None)
Quarter: 2007Q3

REPORT INFORMATION
  Report Type: 
  Country: None (occurrence: None)
  Receive Date: 20070924
  Receipt Date: 20070913
  Transmission Date: 20080115
  Serious: Yes (Hospitalization, Other)
  Sender: FDA-Public Use
  Company Number: JP-JNJFOC-20070704684

PATIENT
  Sex: Female
  Weight: 52 kg

DRUGS (28)
  1. REMICADE [Suspect]
     Route: 042
  2. REMICADE [Suspect]
     Route: 042
  3. REMICADE [Suspect]
     Route: 042
  4. REMICADE [Suspect]
     Route: 042
  5. REMICADE [Suspect]
     Route: 042
  6. REMICADE [Suspect]
     Route: 042
  7. REMICADE [Suspect]
     Route: 042
  8. REMICADE [Suspect]
     Route: 042
  9. REMICADE [Suspect]
     Route: 042
  10. REMICADE [Suspect]
     Route: 042
  11. REMICADE [Suspect]
     Route: 042
  12. REMICADE [Suspect]
     Route: 042
  13. REMICADE [Suspect]
     Route: 042
  14. REMICADE [Suspect]
     Route: 042
  15. REMICADE [Suspect]
     Route: 042
  16. REMICADE [Suspect]
     Route: 042
  17. REMICADE [Suspect]
     Indication: RHEUMATOID ARTHRITIS
     Route: 042
  18. RHEUMATREX [Suspect]
     Indication: RHEUMATOID ARTHRITIS
     Route: 048
  19. SOLU-CORTEF [Suspect]
     Indication: PROPHYLAXIS
     Route: 042
  20. PREDONINE [Concomitant]
     Route: 048
  21. PREDONINE [Concomitant]
     Route: 048
  22. PREDONINE [Concomitant]
     Route: 048
  23. PREDONINE [Concomitant]
     Indication: RHEUMATOID ARTHRITIS
     Route: 048
  24. AZULFIDINE EN-TABS [Concomitant]
     Indication: RHEUMATOID ARTHRITIS
     Route: 048
  25. VOLTAREN [Concomitant]
     Indication: RHEUMATOID ARTHRITIS
     Dosage: ROUTE ^PR^
  26. FOSAMAC [Concomitant]
     Indication: PROPHYLAXIS
     Route: 048
  27. ALFAROL [Concomitant]
     Indication: PROPHYLAXIS
     Dosage: 0.5RG
     Route: 048
  28. SELBEX [Concomitant]
     Indication: PROPHYLAXIS
     Route: 048

REACTIONS (2)
  - ANAPHYLACTOID REACTION [None]
  - INFUSION RELATED REACTION [None]
